FAERS Safety Report 22705087 (Version 6)
Quarter: 2023Q4

REPORT INFORMATION
  Report Type: Report from Study
  Country: MX (occurrence: MX)
  Receive Date: 20230714
  Receipt Date: 20231028
  Transmission Date: 20240110
  Serious: Yes (Life-Threatening, Other)
  Sender: FDA-Public Use
  Company Number: MX-002147023-NVSC2023MX155897

PATIENT
  Age: 65 Year
  Sex: Female
  Weight: 47 kg

DRUGS (15)
  1. DIOVAN [Suspect]
     Active Substance: VALSARTAN
     Indication: Hypertension
     Dosage: 80 MG, QD (1 DOSAGE FORM, BID )
     Route: 048
     Dates: start: 20230120
  2. DIOVAN [Suspect]
     Active Substance: VALSARTAN
     Dosage: 1 DOSAGE FORM (80 MG), Q12H
     Route: 048
     Dates: start: 202301
  3. DIOVAN [Suspect]
     Active Substance: VALSARTAN
     Dosage: 1 DOSAGE FORM, (80MG) Q12H
     Route: 048
     Dates: start: 202301
  4. TELMISARTAN [Suspect]
     Active Substance: TELMISARTAN
     Indication: Hypertension
     Dosage: 1 DOSAGE FORM (80 MG), Q12H
     Route: 048
     Dates: start: 2021, end: 20230120
  5. TENORMIN [Concomitant]
     Active Substance: ATENOLOL
     Indication: Hypertension
     Dosage: 50 MG, Q12H
     Route: 065
     Dates: start: 202301
  6. TENORMIN [Concomitant]
     Active Substance: ATENOLOL
     Indication: Heart rate increased
     Dosage: 0.5 DOSAGE FORM, Q12H (50 MG)
     Route: 048
     Dates: start: 20230205
  7. TENORMIN [Concomitant]
     Active Substance: ATENOLOL
     Indication: Arrhythmia
     Dosage: 1 DOSAGE FORM, BID
     Route: 048
     Dates: start: 20230206
  8. TENORMIN [Concomitant]
     Active Substance: ATENOLOL
     Indication: Tachycardia
     Dosage: 0.5 DOSAGE FORM, (50MG), Q12H
     Route: 048
     Dates: start: 20230206, end: 20231011
  9. TENORMIN [Concomitant]
     Active Substance: ATENOLOL
     Dosage: 1 DOSAGE FORM, QD (0.5 DOSAGE FORM BID)
     Route: 048
     Dates: start: 202304
  10. TENORMIN [Concomitant]
     Active Substance: ATENOLOL
     Dosage: 1 MG, QD (1 DOSAGE FORM, BID)
     Route: 048
     Dates: start: 202304
  11. TENORMIN [Concomitant]
     Active Substance: ATENOLOL
     Dosage: 0.5 DOSAGE FORM, (50MG), Q24H
     Route: 048
     Dates: start: 20231011
  12. AMLODIPINE [Concomitant]
     Active Substance: AMLODIPINE BESYLATE
     Indication: Hypertension
     Dosage: 5 MG, Q12H
     Route: 048
     Dates: start: 202301
  13. AMLODIPINE [Concomitant]
     Active Substance: AMLODIPINE BESYLATE
     Indication: Arrhythmia
     Dosage: 1 DOSAGE FORM, (5 MG) Q12H
     Route: 048
     Dates: start: 20230205
  14. AMLODIPINE [Concomitant]
     Active Substance: AMLODIPINE BESYLATE
     Dosage: 1 DOSAGE FORM, (5MG) Q12H
     Route: 048
     Dates: start: 20230206, end: 20231011
  15. AMLODIPINE [Concomitant]
     Active Substance: AMLODIPINE BESYLATE
     Dosage: 1 DOSAGE FORM, (5 MG) Q24H
     Route: 048
     Dates: start: 20231011

REACTIONS (16)
  - Hypertensive crisis [Recovered/Resolved]
  - Phaeochromocytoma [Not Recovered/Not Resolved]
  - Ganglioglioma [Not Recovered/Not Resolved]
  - Bradycardia [Unknown]
  - Blood catecholamines increased [Unknown]
  - Dizziness [Recovering/Resolving]
  - Fatigue [Recovering/Resolving]
  - Asthenia [Recovering/Resolving]
  - Left atrial enlargement [Unknown]
  - Headache [Recovering/Resolving]
  - Conjunctivitis bacterial [Recovering/Resolving]
  - Conjunctivitis viral [Recovering/Resolving]
  - Swelling of eyelid [Recovering/Resolving]
  - Hordeolum [Recovering/Resolving]
  - Dry eye [Recovering/Resolving]
  - Off label use [Not Recovered/Not Resolved]

NARRATIVE: CASE EVENT DATE: 20230120
